FAERS Safety Report 8541245 (Version 6)
Quarter: 2012Q4

REPORT INFORMATION
  Report Type: 
  Country: CA (occurrence: CA)
  Receive Date: 20120502
  Receipt Date: 20120906
  Transmission Date: 20130627
  Serious: Yes (Other)
  Sender: FDA-Public Use
  Company Number: PHHY2012CA012649

PATIENT
  Age: 41 Year
  Sex: Female

DRUGS (1)
  1. GILENYA [Suspect]
     Indication: MULTIPLE SCLEROSIS
     Dosage: 0.5 mg, daily
     Route: 048
     Dates: start: 20111117, end: 20120424

REACTIONS (23)
  - Lymphadenitis [Recovered/Resolved with Sequelae]
  - Lymphadenopathy [Not Recovered/Not Resolved]
  - Hyperaesthesia [Unknown]
  - Asthenia [Not Recovered/Not Resolved]
  - Neck mass [Unknown]
  - Varicose vein [Unknown]
  - Skin fragility [Not Recovered/Not Resolved]
  - Musculoskeletal stiffness [Unknown]
  - Odynophagia [Unknown]
  - Malaise [Unknown]
  - Vomiting [Unknown]
  - Rash [Unknown]
  - Acne [Unknown]
  - Neutrophil percentage increased [Unknown]
  - Mean cell volume decreased [Unknown]
  - Blood lactate dehydrogenase decreased [Unknown]
  - Alopecia [Recovering/Resolving]
  - Diarrhoea [Unknown]
  - Migraine [Unknown]
  - Lymphocyte count decreased [Unknown]
  - Herpes simplex serology [Unknown]
  - White blood cell count decreased [Unknown]
  - Gamma-glutamyltransferase decreased [Unknown]
